FAERS Safety Report 6694923-0 (Version None)
Quarter: 2010Q2

REPORT INFORMATION
  Report Type: 
  Country: None (occurrence: None)
  Receive Date: 20100423
  Receipt Date: 20100421
  Transmission Date: 20101027
  Serious: Yes (Hospitalization)
  Sender: FDA-Public Use
  Company Number: US-CEPHALON-2010002336

PATIENT
  Sex: Male

DRUGS (3)
  1. TREANDA [Suspect]
     Indication: B-CELL LYMPHOMA
  2. ALLOPURINOL [Suspect]
     Indication: TUMOUR LYSIS SYNDROME
     Route: 048
  3. RITUXIMAB [Concomitant]
     Indication: B-CELL LYMPHOMA

REACTIONS (8)
  - ATRIAL FIBRILLATION [None]
  - COUGH [None]
  - DYSPNOEA [None]
  - FATIGUE [None]
  - LOCAL SWELLING [None]
  - NASOPHARYNGITIS [None]
  - RASH GENERALISED [None]
  - RHINORRHOEA [None]
